FAERS Safety Report 6891510-6 (Version None)
Quarter: 2010Q3

REPORT INFORMATION
  Report Type: 
  Country: None (occurrence: None)
  Receive Date: 20100731
  Receipt Date: 20071217
  Transmission Date: 20110219
  Serious: No
  Sender: FDA-Public Use
  Company Number: US-PFIZER INC-2007005155

PATIENT
  Sex: Male
  Weight: 92.99 kg

DRUGS (3)
  1. NORVASC [Suspect]
     Indication: HYPERTENSION
     Route: 048
     Dates: start: 20070101, end: 20070101
  2. COREG [Concomitant]
  3. VALSARTAN [Concomitant]

REACTIONS (1)
  - SKIN DISCOLOURATION [None]
